FAERS Safety Report 8573799-0 (Version None)
Quarter: 2012Q3

REPORT INFORMATION
  Report Type: 
  Country: None (occurrence: None)
  Receive Date: 20120806
  Receipt Date: 20120726
  Transmission Date: 20120928
  Serious: Yes (Hospitalization, Other)
  Sender: FDA-Public Use
  Company Number: US-ASTRAZENECA-2010SE39373

PATIENT
  Age: 71 Year
  Sex: Female
  Weight: 70.3 kg

DRUGS (9)
  1. CRESTOR [Suspect]
     Indication: BLOOD CHOLESTEROL ABNORMAL
     Route: 048
  2. PLAVIX [Concomitant]
  3. RAMIPRIL [Concomitant]
  4. CRESTOR [Suspect]
     Route: 048
  5. METOPROLOL TARTRATE [Concomitant]
  6. NEXIUM [Suspect]
     Route: 048
  7. SYMBICORT [Suspect]
     Indication: CHRONIC OBSTRUCTIVE PULMONARY DISEASE
     Dosage: 160/4.5 TWO PUFFS BID
     Route: 055
     Dates: start: 20100601
  8. SPIRIVA [Concomitant]
  9. PROAIR HFA [Concomitant]

REACTIONS (20)
  - DYSPHAGIA [None]
  - BLOOD BLISTER [None]
  - HYPERTENSION [None]
  - DYSPHONIA [None]
  - VEIN DISORDER [None]
  - DRY THROAT [None]
  - ABDOMINAL DISCOMFORT [None]
  - MYOCARDIAL INFARCTION [None]
  - NAUSEA [None]
  - ADVERSE DRUG REACTION [None]
  - PHARYNGEAL OEDEMA [None]
  - MIDDLE INSOMNIA [None]
  - COUGH [None]
  - BLOOD CHOLESTEROL INCREASED [None]
  - DRUG INEFFECTIVE [None]
  - TONGUE EXFOLIATION [None]
  - CANDIDIASIS [None]
  - DRY MOUTH [None]
  - PAIN IN EXTREMITY [None]
  - HEADACHE [None]
